FAERS Safety Report 17766175 (Version 2)
Quarter: 2022Q1

REPORT INFORMATION
  Report Type: Spontaneous
  Country: CA (occurrence: CA)
  Receive Date: 20200511
  Receipt Date: 20220302
  Transmission Date: 20220423
  Serious: Yes (Other)
  Sender: FDA-Public Use
  Company Number: CA-JNJFOC-20191046267

PATIENT
  Age: 50 Year
  Sex: Female
  Weight: 79 kg

DRUGS (15)
  1. ULTRAM [Suspect]
     Active Substance: TRAMADOL HYDROCHLORIDE
     Indication: Product used for unknown indication
     Dosage: \
     Route: 065
  2. ATIVAN [Suspect]
     Active Substance: LORAZEPAM
     Indication: Product used for unknown indication
     Route: 065
  3. AMITRIPTYLINE [Suspect]
     Active Substance: AMITRIPTYLINE
     Indication: Product used for unknown indication
     Route: 065
  4. CESAMET [Suspect]
     Active Substance: NABILONE
     Indication: Product used for unknown indication
     Route: 065
  5. CYMBALTA [Suspect]
     Active Substance: DULOXETINE HYDROCHLORIDE
     Indication: Ankylosing spondylitis
     Route: 065
  6. ENBREL [Suspect]
     Active Substance: ETANERCEPT
     Indication: Ankylosing spondylitis
     Route: 058
  7. GABAPENTIN [Suspect]
     Active Substance: GABAPENTIN
     Indication: Product used for unknown indication
     Route: 065
  8. PANTOPRAZOLE [Suspect]
     Active Substance: PANTOPRAZOLE
     Indication: Product used for unknown indication
     Route: 065
  9. DULOXETINE HYDROCHLORIDE [Suspect]
     Active Substance: DULOXETINE HYDROCHLORIDE
     Indication: Product used for unknown indication
     Route: 048
  10. AMITRIPTYLINE\PERPHENAZINE [Concomitant]
     Active Substance: AMITRIPTYLINE\PERPHENAZINE
     Indication: Product used for unknown indication
     Route: 048
  11. BACLOFEN;MORPHINE SULFATE [Concomitant]
     Indication: Product used for unknown indication
     Route: 048
  12. CYCLOBENZAPRINE;DICLOFENAC [Concomitant]
     Indication: Product used for unknown indication
     Route: 048
  13. HUMIRA [Concomitant]
     Active Substance: ADALIMUMAB
     Indication: Product used for unknown indication
     Route: 058
  14. TAPENTADOL HYDROCHLORIDE [Concomitant]
     Active Substance: TAPENTADOL HYDROCHLORIDE
     Indication: Product used for unknown indication
     Route: 048
  15. TYLENOL [Concomitant]
     Active Substance: ACETAMINOPHEN
     Indication: Product used for unknown indication
     Route: 048

REACTIONS (6)
  - Somatic symptom disorder [Unknown]
  - Sacroiliitis [Unknown]
  - Fibromyalgia [Unknown]
  - Cognitive disorder [Unknown]
  - Mood altered [Unknown]
  - Drug ineffective [Unknown]
